FAERS Safety Report 18915056 (Version 1)
Quarter: 2021Q1

REPORT INFORMATION
  Report Type: Spontaneous
  Country: US (occurrence: US)
  Receive Date: 20210219
  Receipt Date: 20210219
  Transmission Date: 20210420
  Serious: Yes (Disabling)
  Sender: FDA-Public Use
  Company Number: None

PATIENT
  Age: 21 Year
  Sex: Male
  Weight: 85.5 kg

DRUGS (2)
  1. ISOTRETINOIN 80MG [Suspect]
     Active Substance: ISOTRETINOIN
  2. CIPROFLOXACIN HCL [Suspect]
     Active Substance: CIPROFLOXACIN HYDROCHLORIDE
     Indication: PROSTATITIS
     Dosage: ?          QUANTITY:1 TABLET(S);?
     Route: 048
     Dates: start: 20201114, end: 20201115

REACTIONS (5)
  - Arthralgia [None]
  - Ligament pain [None]
  - Loss of personal independence in daily activities [None]
  - Myalgia [None]
  - Tendon pain [None]

NARRATIVE: CASE EVENT DATE: 20201114
